FAERS Safety Report 19012139 (Version 1)
Quarter: 2021Q1

REPORT INFORMATION
  Report Type: Spontaneous
  Country: US (occurrence: US)
  Receive Date: 20210315
  Receipt Date: 20210315
  Transmission Date: 20210420
  Serious: Yes (Life-Threatening, Hospitalization, Other)
  Sender: FDA-Public Use
  Company Number: US-JNJFOC-20190617851

PATIENT
  Age: 31 Year
  Sex: Male

DRUGS (1)
  1. IMODIUM [Suspect]
     Active Substance: LOPERAMIDE HYDROCHLORIDE
     Indication: PRODUCT USED FOR UNKNOWN INDICATION
     Dosage: LOPERAMIDE: 2MG?FOR AT LEAST A MONTH
     Route: 048

REACTIONS (4)
  - Toxicity to various agents [Unknown]
  - Electrocardiogram QT prolonged [Recovering/Resolving]
  - Ventricular tachycardia [Unknown]
  - Drug abuse [Unknown]
